FAERS Safety Report 9300805 (Version 2)
Quarter: 2013Q2

REPORT INFORMATION
  Report Type: Spontaneous
  Country: US (occurrence: US)
  Receive Date: 20130521
  Receipt Date: 20130606
  Transmission Date: 20140414
  Serious: Yes (Death)
  Sender: FDA-Public Use
  Company Number: CHPA2013US008491

PATIENT
  Age: 44 Year
  Sex: Female

DRUGS (6)
  1. KERI UNKNOWN [Suspect]
     Indication: PAIN OF SKIN
     Dosage: RUBBED ALL OVER HER BODY, QHS
     Route: 061
     Dates: start: 1985, end: 1989
  2. KERI UNKNOWN [Suspect]
     Indication: DRY SKIN
  3. KERI UNKNOWN [Suspect]
     Indication: SKIN SENSITISATION
  4. KERI UNKNOWN [Suspect]
     Indication: SKIN EXFOLIATION
  5. ALPHA-KERI MOISTURE RICH OIL [Suspect]
     Indication: PAIN OF SKIN
     Dosage: 2.5 CAPFULS IN BATH WATER, 3-4 TIMES PER WEEK
     Route: 061
     Dates: start: 1985, end: 1989
  6. ALPHA-KERI MOISTURE RICH OIL [Suspect]
     Indication: DRY SKIN

REACTIONS (5)
  - Renal failure [Fatal]
  - Urinary tract disorder [Fatal]
  - Coma [Fatal]
  - Therapeutic response unexpected [Unknown]
  - Off label use [Unknown]
